FAERS Safety Report 14239900 (Version 2)
Quarter: 2017Q4

REPORT INFORMATION
  Report Type: Spontaneous
  Country: JP (occurrence: JP)
  Receive Date: 20171130
  Receipt Date: 20171229
  Transmission Date: 20180321
  Serious: Yes (Death, Hospitalization, Other)
  Sender: FDA-Public Use
  Company Number: JP-BAYER-2017-224035

PATIENT
  Age: 82 Year
  Sex: Male
  Weight: 52.4 kg

DRUGS (10)
  1. LANSOPRAZOLE. [Concomitant]
     Active Substance: LANSOPRAZOLE
     Dosage: DAILY DOSE 1 DF
     Route: 048
     Dates: start: 20141119, end: 20141210
  2. PROPOFOL. [Concomitant]
     Active Substance: PROPOFOL
     Indication: ANAESTHESIA PROCEDURE
  3. ROZEREM [Concomitant]
     Active Substance: RAMELTEON
     Dosage: DAILY DOSE 8 MG
     Route: 048
  4. EURODIN [Concomitant]
     Dosage: DAILY DOSE 1 MG
     Route: 048
  5. PENTAGIN [Concomitant]
     Active Substance: PENTAZOCINE HYDROCHLORIDE
     Indication: ANAESTHESIA PROCEDURE
  6. PLAVIX [Suspect]
     Active Substance: CLOPIDOGREL BISULFATE
     Indication: ANTIPLATELET THERAPY
     Dosage: DAILY DOSE 75 MG
     Route: 048
     Dates: start: 20141119
  7. TAKEPRON [Concomitant]
     Active Substance: LANSOPRAZOLE
     Dosage: DAILY DOSE 15 MG
     Route: 048
     Dates: start: 20141211
  8. BAYASPIRIN 100 MG [Suspect]
     Active Substance: ASPIRIN
     Indication: THROMBOSIS PROPHYLAXIS
     Dosage: UNK
     Route: 048
     Dates: start: 20141211
  9. GOODMIN [Concomitant]
     Active Substance: BROTIZOLAM
     Dosage: DAILY DOSE .25 MG
     Route: 048
  10. PLETAAL [Suspect]
     Active Substance: CILOSTAZOL
     Indication: ANTIPLATELET THERAPY
     Dosage: DAILY DOSE 200 MG
     Route: 048
     Dates: start: 20141211

REACTIONS (8)
  - Fall [None]
  - Seizure [Fatal]
  - Labelled drug-drug interaction medication error [Fatal]
  - Pneumonia [Unknown]
  - Dizziness [Fatal]
  - Drug administration error [Fatal]
  - Altered state of consciousness [Fatal]
  - Subdural haematoma [Fatal]

NARRATIVE: CASE EVENT DATE: 20150101
